FAERS Safety Report 17214259 (Version 1)
Quarter: 2019Q4

REPORT INFORMATION
  Report Type: Spontaneous
  Country: FR (occurrence: FR)
  Receive Date: 20191230
  Receipt Date: 20191230
  Transmission Date: 20200122
  Serious: Yes (Other)
  Sender: FDA-Public Use
  Company Number: FR-MYLANLABS-2019M1126858

PATIENT
  Age: 78 Year
  Sex: Female

DRUGS (5)
  1. FLUINDIONE MYLAN [Interacting]
     Active Substance: FLUINDIONE
     Dosage: 20 MG, QD
     Route: 048
     Dates: start: 20120606
  2. KARDEGIC [Interacting]
     Active Substance: ASPIRIN DL-LYSINE
     Indication: PRODUCT USED FOR UNKNOWN INDICATION
     Dosage: 160 MG,QD
     Route: 048
  3. FLUINDIONE MYLAN [Interacting]
     Active Substance: FLUINDIONE
     Indication: PRODUCT USED FOR UNKNOWN INDICATION
     Dosage: UNK UNK, UNK
     Route: 048
  4. PENTOXIFYLLINE MYLAN [Interacting]
     Active Substance: PENTOXIFYLLINE
     Dosage: UNK UNK, UNK
     Route: 048
  5. PENTOXIFYLLINE MYLAN [Suspect]
     Active Substance: PENTOXIFYLLINE
     Indication: PRODUCT USED FOR UNKNOWN INDICATION
     Dosage: 20 MG,QD
     Route: 048
     Dates: start: 20120606

REACTIONS (3)
  - Drug interaction [Unknown]
  - Haematuria [Recovered/Resolved]
  - International normalised ratio increased [Recovered/Resolved]

NARRATIVE: CASE EVENT DATE: 20120625
